FAERS Safety Report 4566847-6 (Version None)
Quarter: 2005Q1

REPORT INFORMATION
  Report Type: 
  Country: None (occurrence: None)
  Receive Date: 20050201
  Receipt Date: 20020418
  Transmission Date: 20050727
  Serious: Yes (Other)
  Sender: FDA-Public Use
  Company Number: US-BRISTOL-MYERS SQUIBB COMPANY-11834843

PATIENT
  Age: 61 Year

DRUGS (8)
  1. STADOL [Suspect]
     Route: 045
     Dates: start: 19941112, end: 20010316
  2. HYDROCODONE + ACETAMINOPHEN [Concomitant]
     Dates: start: 19920101, end: 20010324
  3. AMITRIPTYLINE [Concomitant]
  4. CYCLOBENZAPRINE [Concomitant]
  5. NAPROXEN [Concomitant]
  6. CARDIZEM [Concomitant]
  7. PROMETHAZINE [Concomitant]
  8. CARISOPRODOL [Concomitant]

REACTIONS (6)
  - ASTHENIA [None]
  - CONVULSION [None]
  - DEPENDENCE [None]
  - DIZZINESS [None]
  - DYSPNOEA [None]
  - RESPIRATORY RATE DECREASED [None]
